FAERS Safety Report 24258344 (Version 1)
Quarter: 2024Q3

REPORT INFORMATION
  Report Type: Spontaneous
  Country: US (occurrence: US)
  Receive Date: 20240828
  Receipt Date: 20240828
  Transmission Date: 20241017
  Serious: No
  Sender: PFIZER
  Company Number: US-PFIZER INC-202400242454

PATIENT
  Sex: Male

DRUGS (2)
  1. RITLECITINIB [Suspect]
     Active Substance: RITLECITINIB
     Indication: Alopecia
     Dosage: UNK
     Dates: start: 202310
  2. MINOXIDIL [Concomitant]
     Active Substance: MINOXIDIL
     Indication: Alopecia
     Dosage: UNK

REACTIONS (2)
  - Off label use [Unknown]
  - Drug ineffective for unapproved indication [Recovering/Resolving]

NARRATIVE: CASE EVENT DATE: 20231001
